FAERS Safety Report 6827997-4 (Version None)
Quarter: 2010Q3

REPORT INFORMATION
  Report Type: 
  Country: None (occurrence: None)
  Receive Date: 20100709
  Receipt Date: 20100701
  Transmission Date: 20110219
  Serious: Yes (Hospitalization)
  Sender: FDA-Public Use
  Company Number: A0869221A

PATIENT
  Age: 84 Year
  Sex: Male

DRUGS (7)
  1. AVODART [Suspect]
     Indication: PRODUCT USED FOR UNKNOWN INDICATION
     Route: 048
  2. COUMADIN [Concomitant]
  3. CLONIDINE [Concomitant]
  4. LISINOPRIL [Concomitant]
  5. TERAZOSIN HCL [Concomitant]
  6. ASPIRIN [Concomitant]
  7. PRAVASTATIN [Concomitant]

REACTIONS (4)
  - ASTHENIA [None]
  - BLOOD TEST ABNORMAL [None]
  - HAEMORRHAGE [None]
  - PRODUCT QUALITY ISSUE [None]
